FAERS Safety Report 6909694-X (Version None)
Quarter: 2010Q3

REPORT INFORMATION
  Report Type: 
  Country: None (occurrence: None)
  Receive Date: 20100805
  Receipt Date: 20100728
  Transmission Date: 20110219
  Serious: Yes (Other)
  Sender: FDA-Public Use
  Company Number: US-AMGEN-QUU427651

PATIENT
  Sex: Male

DRUGS (2)
  1. ENBREL [Suspect]
     Indication: RHEUMATOID ARTHRITIS
     Route: 058
  2. LEFLUNOMIDE [Concomitant]

REACTIONS (5)
  - ALLERGIC RESPIRATORY SYMPTOM [None]
  - ASTHENIA [None]
  - HEADACHE [None]
  - LUNG NEOPLASM [None]
  - NODULE ON EXTREMITY [None]
